FAERS Safety Report 5232992-5 (Version None)
Quarter: 2007Q1

REPORT INFORMATION
  Report Type: 
  Country: None (occurrence: None)
  Receive Date: 20061204
  Receipt Date: 20060731
  Transmission Date: 20070707
  Serious: No
  Sender: FDA-Public Use
  Company Number: 2006-BP-08756BP

PATIENT
  Age: 75 Year
  Sex: Female

DRUGS (14)
  1. SPIRIVA [Suspect]
     Indication: CHRONIC OBSTRUCTIVE PULMONARY DISEASE
     Dosage: 18 MCG (18 MCG,1 IN 1 D),IH
     Route: 055
     Dates: start: 20051201
  2. ZELNORM [Concomitant]
  3. SUPPLEMENTAL OXYGEN (OXYGEN) [Concomitant]
  4. THEOPHYLLINE [Concomitant]
  5. WATER PILL (ALL OTHER THERAPEUTIC PRODUCTS) [Concomitant]
  6. THYROID PILL (ALL OTHER THERAPEUTIC PRODUCTS) [Concomitant]
  7. ALLOPURINOL [Concomitant]
  8. ATENOLOL [Concomitant]
  9. NORVASC [Concomitant]
  10. CAPTOPRIL [Concomitant]
  11. ACTOS [Concomitant]
  12. SINGULAIR [Concomitant]
  13. LIPITOR [Concomitant]
  14. ADVAIR (SERETIDE /01420901/) [Concomitant]

REACTIONS (2)
  - DRUG EFFECT DECREASED [None]
  - DRUG INEFFECTIVE [None]
